FAERS Safety Report 10281117 (Version 1)
Quarter: 2014Q3

REPORT INFORMATION
  Report Type: Spontaneous
  Country: US (occurrence: None)
  Receive Date: 20140702
  Receipt Date: 20140702
  Transmission Date: 20150326
  Serious: Yes (Life-Threatening, Hospitalization, Other)
  Sender: FDA-Public Use
  Company Number: None

PATIENT
  Age: 68 Year
  Sex: Male
  Weight: 99.79 kg

DRUGS (11)
  1. CYMBALTA [Concomitant]
     Active Substance: DULOXETINE HYDROCHLORIDE
  2. ASPERIN [Concomitant]
  3. NEXIUM [Concomitant]
     Active Substance: ESOMEPRAZOLE MAGNESIUM
  4. BENADRYL [Concomitant]
     Active Substance: DIPHENHYDRAMINE HYDROCHLORIDE
  5. THYROID MED [Concomitant]
  6. FORTESTA [Suspect]
     Active Substance: TESTOSTERONE
     Indication: BLOOD TESTOSTERONE DECREASED
     Dosage: PER PUMP  5 PUMPS/A.M. 1 PER DAY   APPLY GEL TO SKIN YES
     Dates: start: 201304, end: 201307
  7. MUCINEX DM [Concomitant]
     Active Substance: DEXTROMETHORPHAN HYDROBROMIDE\GUAIFENESIN
  8. NORVASC [Concomitant]
     Active Substance: AMLODIPINE BESYLATE
  9. MOBIC [Concomitant]
     Active Substance: MELOXICAM
  10. ONE-A DAY VITAMIN [Concomitant]
  11. AMBIEN [Concomitant]
     Active Substance: ZOLPIDEM TARTRATE

REACTIONS (7)
  - Blister [None]
  - Swelling face [None]
  - Eye swelling [None]
  - Pain in extremity [None]
  - Urticaria [None]
  - Burns third degree [None]
  - Wound drainage [None]

NARRATIVE: CASE EVENT DATE: 20130702
